FAERS Safety Report 15042466 (Version 1)
Quarter: 2018Q2

REPORT INFORMATION
  Report Type: Spontaneous
  Country: US (occurrence: US)
  Receive Date: 20180531
  Receipt Date: 20180531
  Transmission Date: 20180711
  Serious: Yes (Other)
  Sender: FDA-Public Use
  Company Number: None

PATIENT

DRUGS (7)
  1. CREST 3D WHITE LUXE [Suspect]
     Active Substance: POTASSIUM NITRATE\SODIUM FLUORIDE
     Dosage: ?          OTHER ROUTE:INTRAORAL?
  2. CREST PRO-HEALTH ADVANCED [Suspect]
     Active Substance: STANNOUS FLUORIDE
     Dosage: ?          OTHER ROUTE:INTRAORAL?
  3. CREST 3D WHITE LUXE DIAMOND STRONG [Suspect]
     Active Substance: SODIUM FLUORIDE
     Dosage: ?          OTHER ROUTE:INTRAORAL?
  4. CREST 3D WHITE LUXE DIAMOND STRONG [Suspect]
     Active Substance: SODIUM FLUORIDE
     Dosage: ?          OTHER ROUTE:INTRAORAL?
  5. FLOSE [Concomitant]
  6. CREST 3D WHITE WHITESTRIP DENTAL WHITENING KIT, VERSION UNKNOWN [Suspect]
     Active Substance: HYDROGEN PEROXIDE
     Dosage: ?          OTHER ROUTE:INTRAORAL?
  7. CREST PRO-HEALTH ADVANCED W/EXTRA DEEP CLEAN [Suspect]
     Active Substance: SODIUM FLUORIDE
     Dosage: ?          OTHER ROUTE:INTRAORAL?

REACTIONS (5)
  - Drug ineffective [None]
  - Condition aggravated [None]
  - Tooth discolouration [None]
  - Toothache [None]
  - Sensitivity of teeth [None]
